FAERS Safety Report 17396673 (Version 1)
Quarter: 2020Q1

REPORT INFORMATION
  Report Type: Spontaneous
  Country: US (occurrence: US)
  Receive Date: 20200207
  Receipt Date: 20200207
  Transmission Date: 20200409
  Serious: No
  Sender: FDA-Public Use
  Company Number: None

PATIENT
  Age: 8 Year
  Sex: Male
  Weight: 27 kg

DRUGS (2)
  1. MONTELUKAST SOD 5 MG TAB CHEW [Suspect]
     Active Substance: MONTELUKAST SODIUM
     Indication: ASTHMA
     Dosage: ?          QUANTITY:30 TABLET(S);?
     Route: 048
     Dates: start: 20191126, end: 20191223
  2. FLOVENT HFA INHALER [Concomitant]

REACTIONS (2)
  - Aggression [None]
  - Personality change [None]

NARRATIVE: CASE EVENT DATE: 20191220
